FAERS Safety Report 4609757-8 (Version None)
Quarter: 2005Q1

REPORT INFORMATION
  Report Type: 
  Country: None (occurrence: None)
  Receive Date: 20050314
  Receipt Date: 20040617
  Transmission Date: 20050727
  Serious: Yes (Hospitalization)
  Sender: FDA-Public Use
  Company Number: 8239

PATIENT
  Age: 68 Year
  Sex: Male

DRUGS (6)
  1. AMIODARONE [Suspect]
     Indication: SUPRAVENTRICULAR TACHYCARDIA
     Dosage: 100 MG PO
     Route: 048
     Dates: start: 20010310, end: 20040301
  2. AMIODARONE [Suspect]
     Indication: SUPRAVENTRICULAR TACHYCARDIA
     Dosage: 100 MG PO
     Route: 048
     Dates: start: 20040512, end: 20040517
  3. INDAPAMIDE [Concomitant]
  4. CANDESARTAN [Concomitant]
  5. LANSOPRAZOLE [Concomitant]
  6. VERAPAMIL [Concomitant]

REACTIONS (1)
  - HYPERTHYROIDISM [None]
